FAERS Safety Report 9630866 (Version 2)
Quarter: 2013Q4

REPORT INFORMATION
  Report Type: Spontaneous
  Country: US (occurrence: None)
  Receive Date: 20131015
  Receipt Date: 20131021
  Transmission Date: 20140711
  Serious: Yes (Hospitalization)
  Sender: FDA-Public Use
  Company Number: ACO_38905_2013

PATIENT
  Age: 52 Year
  Sex: Male
  Weight: 83.9 kg

DRUGS (5)
  1. AMPRYA [Suspect]
     Indication: GAIT DISTURBANCE
     Dates: start: 2012, end: 2013
  2. BACLOFEN [Concomitant]
  3. TEGRETOL (CARBAMAZEPINE) UNKNOWN [Concomitant]
  4. JALYN [Concomitant]
  5. COPAXONE [Concomitant]

REACTIONS (3)
  - Cystitis [None]
  - Abasia [None]
  - Drug ineffective [None]
